FAERS Safety Report 6493771-4 (Version None)
Quarter: 2009Q4

REPORT INFORMATION
  Report Type: 
  Country: None (occurrence: None)
  Receive Date: 20091214
  Receipt Date: 20081120
  Transmission Date: 20100525
  Serious: Yes (Other)
  Sender: FDA-Public Use
  Company Number: US-BRISTOL-MYERS SQUIBB COMPANY-14382766

PATIENT
  Age: 8 Year
  Sex: Male

DRUGS (5)
  1. ABILIFY [Suspect]
     Indication: BIPOLAR DISORDER
     Route: 048
  2. DEPAKOTE ER [Suspect]
     Route: 048
  3. DITROPAN [Suspect]
  4. OXYBUTYNIN CHLORIDE [Concomitant]
     Route: 048
  5. FOCALIN [Concomitant]
     Route: 048

REACTIONS (2)
  - CONVULSION [None]
  - EXTRAPYRAMIDAL DISORDER [None]
